FAERS Safety Report 26151798 (Version 1)
Quarter: 2025Q4

REPORT INFORMATION
  Report Type: Report from Study
  Country: EU (occurrence: EU)
  Receive Date: 20251214
  Receipt Date: 20251214
  Transmission Date: 20260117
  Serious: Yes (Hospitalization)
  Sender: MYLAN
  Company Number: None

PATIENT
  Age: 61 Year
  Sex: Male

DRUGS (28)
  1. ACETAMINOPHEN [Suspect]
     Active Substance: ACETAMINOPHEN
     Indication: Product used for unknown indication
     Dosage: 16 DOSAGE FORM (1000 MG / 16 TABLETS)
     Route: 061
     Dates: start: 20251017, end: 20251017
  2. ACETAMINOPHEN [Suspect]
     Active Substance: ACETAMINOPHEN
     Dosage: 16 DOSAGE FORM (1000 MG / 16 TABLETS)
     Route: 048
     Dates: start: 20251017, end: 20251017
  3. ACETAMINOPHEN [Suspect]
     Active Substance: ACETAMINOPHEN
     Dosage: 16 DOSAGE FORM (1000 MG / 16 TABLETS)
     Route: 048
     Dates: start: 20251017, end: 20251017
  4. ACETAMINOPHEN [Suspect]
     Active Substance: ACETAMINOPHEN
     Dosage: 16 DOSAGE FORM (1000 MG / 16 TABLETS)
     Route: 061
     Dates: start: 20251017, end: 20251017
  5. VARDENAFIL [Suspect]
     Active Substance: VARDENAFIL HYDROCHLORIDE
     Indication: Product used for unknown indication
     Dosage: 4 DOSAGE FORM (20 MG / 4 TABLETS)
     Route: 061
     Dates: start: 20251017, end: 20251017
  6. VARDENAFIL [Suspect]
     Active Substance: VARDENAFIL HYDROCHLORIDE
     Dosage: 4 DOSAGE FORM (20 MG / 4 TABLETS)
     Route: 048
     Dates: start: 20251017, end: 20251017
  7. VARDENAFIL [Suspect]
     Active Substance: VARDENAFIL HYDROCHLORIDE
     Dosage: 4 DOSAGE FORM (20 MG / 4 TABLETS)
     Route: 048
     Dates: start: 20251017, end: 20251017
  8. VARDENAFIL [Suspect]
     Active Substance: VARDENAFIL HYDROCHLORIDE
     Dosage: 4 DOSAGE FORM (20 MG / 4 TABLETS)
     Route: 061
     Dates: start: 20251017, end: 20251017
  9. ACETAMINOPHEN\THIOCOLCHICOSIDE [Suspect]
     Active Substance: ACETAMINOPHEN\THIOCOLCHICOSIDE
     Indication: Product used for unknown indication
     Dosage: 15 DOSAGE FORM (500 + 2 MG 15 TABLETS)
     Route: 061
     Dates: start: 20251017, end: 20251017
  10. ACETAMINOPHEN\THIOCOLCHICOSIDE [Suspect]
     Active Substance: ACETAMINOPHEN\THIOCOLCHICOSIDE
     Dosage: 15 DOSAGE FORM (500 + 2 MG 15 TABLETS)
     Route: 048
     Dates: start: 20251017, end: 20251017
  11. ACETAMINOPHEN\THIOCOLCHICOSIDE [Suspect]
     Active Substance: ACETAMINOPHEN\THIOCOLCHICOSIDE
     Dosage: 15 DOSAGE FORM (500 + 2 MG 15 TABLETS)
     Route: 048
     Dates: start: 20251017, end: 20251017
  12. ACETAMINOPHEN\THIOCOLCHICOSIDE [Suspect]
     Active Substance: ACETAMINOPHEN\THIOCOLCHICOSIDE
     Dosage: 15 DOSAGE FORM (500 + 2 MG 15 TABLETS)
     Route: 061
     Dates: start: 20251017, end: 20251017
  13. DICLOFENAC SODIUM [Suspect]
     Active Substance: DICLOFENAC SODIUM
     Indication: Product used for unknown indication
     Dosage: 18 DOSAGE FORM (100 MG / 18 TABLETS)
     Route: 061
     Dates: start: 20251017, end: 20251017
  14. DICLOFENAC SODIUM [Suspect]
     Active Substance: DICLOFENAC SODIUM
     Dosage: 18 DOSAGE FORM (100 MG / 18 TABLETS)
     Route: 048
     Dates: start: 20251017, end: 20251017
  15. DICLOFENAC SODIUM [Suspect]
     Active Substance: DICLOFENAC SODIUM
     Dosage: 18 DOSAGE FORM (100 MG / 18 TABLETS)
     Route: 048
     Dates: start: 20251017, end: 20251017
  16. DICLOFENAC SODIUM [Suspect]
     Active Substance: DICLOFENAC SODIUM
     Dosage: 18 DOSAGE FORM (100 MG / 18 TABLETS)
     Route: 061
     Dates: start: 20251017, end: 20251017
  17. DEFLAZACORT [Suspect]
     Active Substance: DEFLAZACORT
     Indication: Product used for unknown indication
     Dosage: 10 DOSAGE FORM (30 MG / 10 TABLETS)
     Route: 061
     Dates: start: 20251017, end: 20251017
  18. DEFLAZACORT [Suspect]
     Active Substance: DEFLAZACORT
     Dosage: 10 DOSAGE FORM (30 MG / 10 TABLETS)
     Route: 048
     Dates: start: 20251017, end: 20251017
  19. DEFLAZACORT [Suspect]
     Active Substance: DEFLAZACORT
     Dosage: 10 DOSAGE FORM (30 MG / 10 TABLETS)
     Route: 048
     Dates: start: 20251017, end: 20251017
  20. DEFLAZACORT [Suspect]
     Active Substance: DEFLAZACORT
     Dosage: 10 DOSAGE FORM (30 MG / 10 TABLETS)
     Route: 061
     Dates: start: 20251017, end: 20251017
  21. BISOPROLOL [Concomitant]
     Active Substance: BISOPROLOL
     Dosage: UNK
     Route: 061
  22. BISOPROLOL [Concomitant]
     Active Substance: BISOPROLOL
     Dosage: UNK
     Route: 048
  23. BISOPROLOL [Concomitant]
     Active Substance: BISOPROLOL
     Dosage: UNK
     Route: 048
  24. BISOPROLOL [Concomitant]
     Active Substance: BISOPROLOL
     Dosage: UNK
     Route: 061
  25. ASPIRIN [Concomitant]
     Active Substance: ASPIRIN
     Dosage: UNK
     Route: 061
  26. ASPIRIN [Concomitant]
     Active Substance: ASPIRIN
     Dosage: UNK
     Route: 048
  27. ASPIRIN [Concomitant]
     Active Substance: ASPIRIN
     Dosage: UNK
     Route: 048
  28. ASPIRIN [Concomitant]
     Active Substance: ASPIRIN
     Dosage: UNK
     Route: 061

REACTIONS (5)
  - Toxicity to various agents [Recovering/Resolving]
  - Poisoning deliberate [Recovering/Resolving]
  - Sopor [Recovering/Resolving]
  - Bradycardia [Recovering/Resolving]
  - Vomiting [Recovered/Resolved]

NARRATIVE: CASE EVENT DATE: 20251017
